FAERS Safety Report 5648474-2 (Version None)
Quarter: 2008Q1

REPORT INFORMATION
  Report Type: 
  Country: None (occurrence: None)
  Receive Date: 20080304
  Receipt Date: 20080227
  Transmission Date: 20080703
  Serious: Yes (Death, Other)
  Sender: FDA-Public Use
  Company Number: PHHY2008JP02294

PATIENT
  Age: 1 Year
  Sex: Female

DRUGS (2)
  1. SIMULECT [Suspect]
     Indication: LIVER AND SMALL INTESTINE TRANSPLANT
     Route: 042
  2. PROGRAF [Suspect]
     Indication: LIVER AND SMALL INTESTINE TRANSPLANT

REACTIONS (5)
  - CHOLANGITIS [None]
  - EPSTEIN-BARR VIRUS INFECTION [None]
  - HEPATIC STEATOSIS [None]
  - LYMPHOPROLIFERATIVE DISORDER [None]
  - SEPTIC SHOCK [None]
